FAERS Safety Report 17450157 (Version 3)
Quarter: 2020Q2

REPORT INFORMATION
  Report Type: Spontaneous
  Country: JP (occurrence: JP)
  Receive Date: 20200224
  Receipt Date: 20200413
  Transmission Date: 20200713
  Serious: Yes (Hospitalization, Other)
  Sender: FDA-Public Use
  Company Number: JP-SA-2020SA044215

PATIENT
  Age: 45 Year
  Sex: Female
  Weight: 43 kg

DRUGS (3)
  1. CLOTIAZEPAM [Suspect]
     Active Substance: CLOTIAZEPAM
     Indication: ANXIETY
     Dosage: 5 MG AS NEEDED
     Route: 048
  2. MYSLEE [Suspect]
     Active Substance: ZOLPIDEM TARTRATE
     Indication: INSOMNIA
     Dosage: 10 MG AS NEEDED
     Route: 048
  3. FLUNITRAZEPAM [Suspect]
     Active Substance: FLUNITRAZEPAM
     Indication: INSOMNIA
     Dosage: 2 MG AS NEEDED
     Route: 048

REACTIONS (7)
  - Vomiting [Unknown]
  - Ulcer [Unknown]
  - Intestinal tuberculosis [Unknown]
  - Jejunal stenosis [Unknown]
  - Abdominal pain [Unknown]
  - Gastrointestinal erosion [Unknown]
  - Intestinal obstruction [Unknown]
